FAERS Safety Report 8310816-7 (Version None)
Quarter: 2012Q2

REPORT INFORMATION
  Report Type: 
  Country: None (occurrence: None)
  Receive Date: 20120425
  Receipt Date: 19910417
  Transmission Date: 20120825
  Serious: Yes (Death, Hospitalization, Other)
  Sender: FDA-Public Use
  Company Number: FR-ROCHE-16876

PATIENT
  Sex: Male

DRUGS (4)
  1. NAPROXEN [Suspect]
     Indication: ANKYLOSING SPONDYLITIS
     Route: 048
     Dates: start: 19900701, end: 19900901
  2. SECTRAL [Concomitant]
     Route: 048
  3. SINTROM [Concomitant]
     Route: 048
  4. ACETAMINOPHEN [Concomitant]

REACTIONS (7)
  - PANCYTOPENIA [None]
  - PURPURA [None]
  - INFECTION [None]
  - BONE MARROW FAILURE [None]
  - AGRANULOCYTOSIS [None]
  - PYREXIA [None]
  - CHILLS [None]
